FAERS Safety Report 13133417 (Version 1)
Quarter: 2017Q1

REPORT INFORMATION
  Report Type: Spontaneous
  Country: US (occurrence: US)
  Receive Date: 20170119
  Receipt Date: 20170119
  Transmission Date: 20170428
  Serious: Yes (Hospitalization)
  Sender: FDA-Public Use
  Company Number: None

PATIENT
  Sex: Male

DRUGS (3)
  1. NORCO [Concomitant]
     Active Substance: ACETAMINOPHEN\HYDROCODONE BITARTRATE
  2. SODIUM CHLORIDE 3% VIAL [Suspect]
     Active Substance: SODIUM CHLORIDE
     Indication: CYSTIC FIBROSIS
     Dosage: DOSE AMOUNT - 3ML?FREQUENCY BID?ROUTE INH VIA NEB
     Route: 055
     Dates: start: 20151216
  3. TOBRAMYCIN 300MG/5ML NEB [Suspect]
     Active Substance: TOBRAMYCIN
     Indication: CYSTIC FIBROSIS
     Dosage: DOSE AMOUNT - 1 VIAL?FREQUENCY - Q12H X28DAYS?ROUTE INH VIA NEB
     Route: 055
     Dates: start: 20150124

REACTIONS (1)
  - Hospitalisation [None]

NARRATIVE: CASE EVENT DATE: 2017
